FAERS Safety Report 10109897 (Version 1)
Quarter: 2014Q2

REPORT INFORMATION
  Report Type: Spontaneous
  Country: US (occurrence: None)
  Receive Date: 20140414
  Receipt Date: 20140414
  Transmission Date: 20141212
  Serious: Yes (Life-Threatening)
  Sender: FDA-Public Use
  Company Number: FK201302531

PATIENT
  Age: 69 Year
  Sex: Female

DRUGS (1)
  1. METHOTREXATE INJECTION USP [Suspect]
     Indication: RHEUMATOID ARTHRITIS
     Route: 030
     Dates: start: 20130610

REACTIONS (6)
  - Feeling abnormal [None]
  - Dizziness [None]
  - Swelling face [None]
  - Rash macular [None]
  - Nausea [None]
  - Fatigue [None]
